FAERS Safety Report 9884814 (Version 2)
Quarter: 2014Q1

REPORT INFORMATION
  Report Type: Spontaneous
  Country: US (occurrence: US)
  Receive Date: 20140210
  Receipt Date: 20140210
  Transmission Date: 20141002
  Serious: No
  Sender: FDA-Public Use
  Company Number: US-ALLERGAN-1317706US

PATIENT
  Sex: Female

DRUGS (4)
  1. BOTOX COSMETIC [Suspect]
     Indication: SKIN WRINKLING
     Dosage: 25 UNITS, SINGLE
     Route: 030
     Dates: start: 20131024, end: 20131024
  2. BOTOX COSMETIC [Suspect]
     Indication: SKIN WRINKLING
  3. LEXAPRO [Concomitant]
     Indication: PRODUCT USED FOR UNKNOWN INDICATION
     Dosage: UNK
  4. SOLADYN [Concomitant]
     Indication: ACNE
     Dosage: UNK

REACTIONS (3)
  - Injection site rash [Unknown]
  - Injection site mass [Unknown]
  - Wrong technique in drug usage process [Unknown]
